FAERS Safety Report 6007548-7 (Version None)
Quarter: 2008Q4

REPORT INFORMATION
  Report Type: 
  Country: None (occurrence: None)
  Receive Date: 20081217
  Receipt Date: 20080507
  Transmission Date: 20090506
  Serious: No
  Sender: FDA-Public Use
  Company Number: US-ASTRAZENECA-2008UW09370

PATIENT
  Sex: Female

DRUGS (1)
  1. CRESTOR [Suspect]
     Dates: start: 20040101, end: 20040101

REACTIONS (1)
  - ADVERSE EVENT [None]
